FAERS Safety Report 21492968 (Version 1)
Quarter: 2022Q4

REPORT INFORMATION
  Report Type: Spontaneous
  Country: US (occurrence: None)
  Receive Date: 20221020
  Receipt Date: 20221020
  Transmission Date: 20230113
  Serious: Yes (Death)
  Sender: FDA-Public Use
  Company Number: None

PATIENT
  Sex: Male
  Weight: 83.46 kg

DRUGS (12)
  1. CYTARABINE [Suspect]
     Active Substance: CYTARABINE
     Indication: Acute myeloid leukaemia
     Dosage: 20MG TWICE DAILY SUBCUTANEOUS?
     Route: 058
  2. DAURISMO [Suspect]
     Active Substance: GLASDEGIB
     Dosage: 100MG DAILY ORAL
  3. ACYCLOVIR [Concomitant]
     Active Substance: ACYCLOVIR
  4. CRESTOR [Concomitant]
     Active Substance: ROSUVASTATIN CALCIUM
  5. HEPARIN [Concomitant]
     Active Substance: HEPARIN SODIUM
  6. KLOR-CON [Concomitant]
     Active Substance: POTASSIUM CHLORIDE
  7. Levetira [Concomitant]
  8. LEVAQUIN [Concomitant]
     Active Substance: LEVOFLOXACIN
  9. METOPROLOL [Concomitant]
     Active Substance: METOPROLOL
  10. PANTOPRAZOLE [Concomitant]
     Active Substance: PANTOPRAZOLE
  11. POTASSIUM [Concomitant]
     Active Substance: POTASSIUM
  12. ZOFRAN [Concomitant]
     Active Substance: ONDANSETRON HYDROCHLORIDE

REACTIONS (1)
  - Death [None]
